FAERS Safety Report 18247509 (Version 2)
Quarter: 2021Q2

REPORT INFORMATION
  Report Type: Spontaneous
  Country: US (occurrence: US)
  Receive Date: 20200909
  Receipt Date: 20210601
  Transmission Date: 20210717
  Serious: Yes (Other)
  Sender: FDA-Public Use
  Company Number: US-TAKEDA-2020TUS037528

PATIENT
  Sex: Female
  Weight: 54 kg

DRUGS (3)
  1. ALUNBRIG [Suspect]
     Active Substance: BRIGATINIB
     Indication: LUNG CARCINOMA CELL TYPE UNSPECIFIED STAGE 0
     Dosage: 180 MILLIGRAM, QD
     Route: 065
     Dates: start: 20200609
  2. ALUNBRIG [Suspect]
     Active Substance: BRIGATINIB
     Indication: SMALL CELL LUNG CANCER
  3. XARELTO [Concomitant]
     Active Substance: RIVAROXABAN
     Indication: THYROID DISORDER
     Dosage: UNK

REACTIONS (3)
  - Fatigue [Not Recovered/Not Resolved]
  - Muscle spasms [Unknown]
  - Neuropathy peripheral [Not Recovered/Not Resolved]
